FAERS Safety Report 9314229 (Version 1)
Quarter: 2013Q2

REPORT INFORMATION
  Report Type: Spontaneous
  Country: ES (occurrence: ES)
  Receive Date: 20130529
  Receipt Date: 20130529
  Transmission Date: 20140414
  Serious: Yes (Other)
  Sender: FDA-Public Use
  Company Number: ES-AMGEN-ESPSP2013037978

PATIENT
  Age: 56 Year
  Sex: Female

DRUGS (5)
  1. ENBREL [Suspect]
     Indication: ANKYLOSING SPONDYLITIS
     Dosage: 50 MG, UNK
     Route: 058
  2. ACREL [Concomitant]
     Indication: OSTEOPOROSIS
     Dosage: 5 MG, UNK
     Dates: start: 20110104, end: 20130416
  3. IDEOS [Concomitant]
     Dosage: UNK
  4. VIMOVO [Concomitant]
     Dosage: UNK
  5. XICIL [Concomitant]
     Dosage: 1500 MG, 1X/DAY

REACTIONS (1)
  - Macular degeneration [Unknown]
